FAERS Safety Report 6344151-3 (Version None)
Quarter: 2009Q3

REPORT INFORMATION
  Report Type: 
  Country: None (occurrence: None)
  Receive Date: 20090908
  Receipt Date: 20090827
  Transmission Date: 20100115
  Serious: Yes (Disabling, Other)
  Sender: FDA-Public Use
  Company Number: US-AVENTIS-200917717US

PATIENT
  Sex: Male

DRUGS (3)
  1. LANTUS [Suspect]
     Route: 058
     Dates: start: 20040101
  2. OPTICLIK (INSULIN INJECTION PEN) [Suspect]
     Dates: start: 20040101
  3. PLAVIX [Concomitant]
     Dosage: DOSE: UNK
     Dates: start: 20080701

REACTIONS (2)
  - DIABETIC FOOT [None]
  - FOOT AMPUTATION [None]
